FAERS Safety Report 9166756 (Version 1)
Quarter: 2013Q1

REPORT INFORMATION
  Report Type: Spontaneous
  Country: US (occurrence: US)
  Receive Date: 20130315
  Receipt Date: 20130315
  Transmission Date: 20140127
  Serious: No
  Sender: FDA-Public Use
  Company Number: US-009507513-1303USA007458

PATIENT
  Age: 38 Year
  Sex: Female

DRUGS (1)
  1. CLARITIN-D 24 HOUR [Suspect]
     Indication: NASOPHARYNGITIS
     Dosage: UNK, UNKNOWN
     Route: 048

REACTIONS (6)
  - Somnolence [Unknown]
  - Nervousness [Unknown]
  - Irritability [Unknown]
  - Energy increased [Unknown]
  - Malaise [Unknown]
  - Drug ineffective [Unknown]
